FAERS Safety Report 6141220-8 (Version None)
Quarter: 2009Q2

REPORT INFORMATION
  Report Type: 
  Country: None (occurrence: None)
  Receive Date: 20090402
  Receipt Date: 20090327
  Transmission Date: 20091009
  Serious: Yes (Life-Threatening, Hospitalization)
  Sender: FDA-Public Use
  Company Number: JP-ELI_LILLY_AND_COMPANY-JP200706003072

PATIENT
  Sex: Male
  Weight: 57.2 kg

DRUGS (18)
  1. PEMETREXED [Suspect]
     Indication: PLEURAL MESOTHELIOMA MALIGNANT
     Dosage: 830 MG, OTHER
     Route: 042
     Dates: start: 20070518, end: 20070518
  2. PEMETREXED [Suspect]
     Dosage: 410 MG, OTHER
     Route: 042
     Dates: start: 20070611, end: 20070711
  3. CISPLATIN [Suspect]
     Indication: PLEURAL MESOTHELIOMA MALIGNANT
     Dosage: 120 MG, OTHER
     Route: 042
     Dates: start: 20070518, end: 20070518
  4. CISPLATIN [Suspect]
     Dosage: 60 MG, OTHER
     Route: 042
     Dates: start: 20070611, end: 20070711
  5. PANVITAN [Concomitant]
     Dosage: 1 G, DAILY (1/D)
     Route: 048
     Dates: start: 20070424, end: 20070824
  6. HYDROXOCOBALAMIN ACETATE [Concomitant]
     Dosage: 1 MG, OTHER
     Route: 030
     Dates: start: 20070424, end: 20070424
  7. HYDROXOCOBALAMIN ACETATE [Concomitant]
     Dosage: 1 MG, OTHER
     Route: 030
     Dates: start: 20070626, end: 20070626
  8. HARNAL [Concomitant]
     Indication: BENIGN PROSTATIC HYPERPLASIA
     Dosage: 0.2 MG, DAILY (1/D)
     Route: 048
     Dates: end: 20070824
  9. TAKEPRON [Concomitant]
     Indication: GASTRIC ULCER
     Dosage: 15 MG, DAILY (1/D)
     Route: 048
     Dates: end: 20070824
  10. VASOLAN [Concomitant]
     Indication: ATRIAL FIBRILLATION
     Dosage: 80 MG, DAILY (1/D)
     Route: 048
     Dates: end: 20070824
  11. MAGNESIUM OXIDE [Concomitant]
     Indication: CONSTIPATION
     Dosage: 1 G, DAILY (1/D)
     Route: 048
     Dates: end: 20070824
  12. MYSLEE [Concomitant]
     Indication: PROPHYLAXIS
     Dosage: 10 MG, DAILY (1/D)
     Route: 048
     Dates: end: 20070824
  13. PURSENNID [Concomitant]
     Indication: CONSTIPATION
     Dosage: 24 MG, AS NEEDED
     Route: 048
     Dates: end: 20070824
  14. CALONAL [Concomitant]
     Indication: TUMOUR ASSOCIATED FEVER
     Dosage: 2 D/F, AS NEEDED
     Route: 048
     Dates: end: 20070625
  15. WARFARIN SODIUM [Concomitant]
     Indication: ATRIAL FIBRILLATION
     Dosage: 2 MG, DAILY (1/D)
     Route: 048
     Dates: end: 20070521
  16. OXYCONTIN [Concomitant]
     Indication: CANCER PAIN
     Dosage: 10 MG, DAILY (1/D)
     Route: 048
     Dates: start: 20070507
  17. OPSO [Concomitant]
     Indication: CANCER PAIN
     Dosage: 5 MG, DAILY (1/D)
     Route: 048
     Dates: start: 20070507
  18. NAIXAN [Concomitant]
     Indication: TUMOUR ASSOCIATED FEVER
     Dosage: 600 MG, DAILY (1/D)
     Route: 048
     Dates: start: 20070717

REACTIONS (6)
  - ALANINE AMINOTRANSFERASE INCREASED [None]
  - ANAEMIA [None]
  - ASPARTATE AMINOTRANSFERASE INCREASED [None]
  - DISSEMINATED INTRAVASCULAR COAGULATION [None]
  - FEBRILE NEUTROPENIA [None]
  - PLATELET COUNT DECREASED [None]
